FAERS Safety Report 23530115 (Version 1)
Quarter: 2024Q1

REPORT INFORMATION
  Report Type: Report from Study
  Country: BR (occurrence: BR)
  Receive Date: 20240216
  Receipt Date: 20240216
  Transmission Date: 20240410
  Serious: Yes (Other)
  Sender: FDA-Public Use
  Company Number: BR-JNJFOC-20240161867

PATIENT
  Age: 39 Year
  Sex: Female
  Weight: 60 kg

DRUGS (7)
  1. INFLIXIMAB [Suspect]
     Active Substance: INFLIXIMAB
     Indication: Ankylosing spondylitis
     Route: 041
  2. REMICADE [Suspect]
     Active Substance: INFLIXIMAB
     Indication: Ankylosing spondylitis
     Route: 041
     Dates: start: 20240111
  3. ARCOXIA [Concomitant]
     Active Substance: ETORICOXIB
     Indication: Fibromyalgia
  4. LYRICA [Concomitant]
     Active Substance: PREGABALIN
     Indication: Fibromyalgia
  5. DELSYM [Concomitant]
     Active Substance: DEXTROMETHORPHAN
     Indication: Fibromyalgia
  6. PREGABALIN [Concomitant]
     Active Substance: PREGABALIN
     Indication: Fibromyalgia
     Dosage: ONE TABLET OF 75MG IN THE MORNING AND ONE TABLET OF 150 MG AT NIGHT;
  7. SULFASALAZINE [Concomitant]
     Active Substance: SULFASALAZINE
     Indication: Fibromyalgia

REACTIONS (3)
  - Systemic lupus erythematosus [Unknown]
  - Memory impairment [Unknown]
  - Off label use [Unknown]
